FAERS Safety Report 18237677 (Version 2)
Quarter: 2020Q3

REPORT INFORMATION
  Report Type: Spontaneous
  Country: GR (occurrence: GR)
  Receive Date: 20200907
  Receipt Date: 20200922
  Transmission Date: 20201104
  Serious: Yes (Death, Hospitalization)
  Sender: FDA-Public Use
  Company Number: GR-ROCHE-2669638

PATIENT
  Age: 50 Year
  Sex: Male

DRUGS (1)
  1. POLATUZUMAB VEDOTIN. [Suspect]
     Active Substance: POLATUZUMAB VEDOTIN
     Indication: DIFFUSE LARGE B-CELL LYMPHOMA
     Route: 042
     Dates: start: 20200706

REACTIONS (1)
  - Diffuse large B-cell lymphoma refractory [Fatal]
